FAERS Safety Report 11114700 (Version 1)
Quarter: 2015Q2

REPORT INFORMATION
  Report Type: Spontaneous
  Country: ES (occurrence: ES)
  Receive Date: 20150515
  Receipt Date: 20150515
  Transmission Date: 20150821
  Serious: Yes (Hospitalization)
  Sender: FDA-Public Use
  Company Number: ES-AMGEN-ESPSP2014101250

PATIENT
  Age: 66 Year
  Sex: Female

DRUGS (19)
  1. DILIBAN [Concomitant]
     Dosage: 1 DF 2 OR 3 DAYS (75MG/650MG)
  2. CO-DIOVAN [Concomitant]
     Active Substance: HYDROCHLOROTHIAZIDE\VALSARTAN
     Indication: HYPERTENSION
     Dosage: UNK, ONCE A DAY
  3. MASTICAL [Concomitant]
     Indication: OSTEOPOROSIS
     Dosage: UNK, ONCE A DAY
  4. ENBREL [Suspect]
     Active Substance: ETANERCEPT
     Indication: ANKYLOSING SPONDYLITIS
     Dosage: 50 MG, WEEKLY (ON FRIDAYS)
     Route: 058
     Dates: start: 201501
  5. CELEBREX [Concomitant]
     Active Substance: CELECOXIB
     Indication: PAIN
     Dosage: 200 MG, 1X/DAY
  6. ELIXIFILIN [Concomitant]
     Indication: RESPIRATORY DISORDER
     Dosage: 7.5 ML, 2X/DAY
  7. VENTOLIN [Concomitant]
     Active Substance: ALBUTEROL SULFATE
     Indication: FATIGUE
     Dosage: 1 ONE INHALATION, EVERY 12 HOURS TAKEN FOR IF SHE HAD FATIGUE
  8. SERETIDE [Concomitant]
     Active Substance: FLUTICASONE FUROATE\SALMETEROL XINAFOATE
     Indication: RESPIRATORY DISORDER
     Dosage: 2 DF, 2X/DAY (EVERY 12 HOURS)
  9. ENBREL [Suspect]
     Active Substance: ETANERCEPT
     Indication: RHEUMATOID ARTHRITIS
     Dosage: 50 MG, WEEKLY (ON THURSDAYS)
     Route: 058
     Dates: start: 20141204
  10. CELEBREX [Concomitant]
     Active Substance: CELECOXIB
     Indication: INFLAMMATION
     Dosage: UNK
  11. DILIBAN [Concomitant]
     Indication: PAIN
     Dosage: ONCE EVERY 12 HOURS, ALMOST ALWAYS (75MG/650MG)
  12. SINTROM [Concomitant]
     Active Substance: ACENOCOUMAROL
     Indication: ARRHYTHMIA
     Dosage: UNK
  13. VENTOLIN [Concomitant]
     Active Substance: ALBUTEROL SULFATE
     Dosage: 2 PUFFS EVERY 12 HOURS IF SHE HAD FATIGUE DURING THE DAY
  14. ENBREL [Suspect]
     Active Substance: ETANERCEPT
     Dosage: 50 MG, WEEKLY (ON SATURDAYS)
     Route: 058
  15. HIDROFEROL [Concomitant]
     Active Substance: CALCIFEDIOL
     Dosage: 1 AMPOULE EVERY 15 DAYS
  16. BISOPROLOL [Concomitant]
     Active Substance: BISOPROLOL
     Indication: ARRHYTHMIA
     Dosage: UNK, ONCE A DAY
  17. FOSTER                             /06206901/ [Concomitant]
     Indication: RESPIRATORY DISORDER
     Dosage: ONE INHALATION, EVERY 12 HOURS
  18. TRADJENTA [Concomitant]
     Active Substance: LINAGLIPTIN
     Indication: DIABETES MELLITUS
     Dosage: 5 MG, ONCE A DAY
  19. ENBREL [Suspect]
     Active Substance: ETANERCEPT
     Dosage: 50 MG, WEEKLY (ON SATURDAYS)
     Route: 058
     Dates: start: 2015

REACTIONS (16)
  - Wheezing [Unknown]
  - Nasopharyngitis [Unknown]
  - Cough [Not Recovered/Not Resolved]
  - Injection site mass [Recovered/Resolved]
  - Injection site pruritus [Recovered/Resolved]
  - Injection site induration [Recovered/Resolved]
  - Drug ineffective [Unknown]
  - Bronchial disorder [Unknown]
  - Injection site haematoma [Unknown]
  - Blood pressure increased [Unknown]
  - Pyrexia [Recovered/Resolved]
  - Injection site urticaria [Recovered/Resolved]
  - Injection site pain [Unknown]
  - Bronchitis [Unknown]
  - Blood pressure decreased [Unknown]
  - Injection site erythema [Recovered/Resolved]

NARRATIVE: CASE EVENT DATE: 201412
